FAERS Safety Report 22189964 (Version 1)
Quarter: 2023Q2

REPORT INFORMATION
  Report Type: Report from Study
  Country: KR (occurrence: KR)
  Receive Date: 20230410
  Receipt Date: 20230410
  Transmission Date: 20230721
  Serious: Yes (Life-Threatening, Hospitalization, Other)
  Sender: FDA-Public Use
  Company Number: KR-CELLTRION INC.-2023KR006892

PATIENT

DRUGS (2)
  1. TRUXIMA [Suspect]
     Active Substance: RITUXIMAB-ABBS
     Indication: Diffuse large B-cell lymphoma
     Dosage: 686 MG (FREQUENCY: Q3 WEEKS)
     Route: 042
     Dates: start: 20230220, end: 20230220
  2. TRUXIMA [Suspect]
     Active Substance: RITUXIMAB-ABBS
     Dosage: 641 MILLIGRAM
     Route: 042
     Dates: start: 20230220, end: 20230327

REACTIONS (5)
  - Large intestine perforation [Recovering/Resolving]
  - Renal artery thrombosis [Recovered/Resolved]
  - Haematochezia [Recovering/Resolving]
  - Overdose [Unknown]
  - Underdose [Unknown]

NARRATIVE: CASE EVENT DATE: 20230224
